FAERS Safety Report 4682251-4 (Version None)
Quarter: 2005Q2

REPORT INFORMATION
  Report Type: 
  Country: None (occurrence: None)
  Receive Date: 20050601
  Receipt Date: 20050513
  Transmission Date: 20051028
  Serious: Yes (Hospitalization)
  Sender: FDA-Public Use
  Company Number: THYM-10498

PATIENT
  Age: 45 Year
  Sex: Female
  Weight: 45.3 kg

DRUGS (5)
  1. THYMOGLOBULIN [Suspect]
     Indication: KIDNEY TRANSPLANT REJECTION
     Dosage: 75 MG QD IV
     Route: 042
     Dates: start: 20041021, end: 20041021
  2. TACROLIMUS [Concomitant]
  3. RAPAMUNE [Concomitant]
  4. PREDNISONE TAB [Concomitant]
  5. MYCOPHENOLATE MOFETIL [Concomitant]

REACTIONS (6)
  - DEHYDRATION [None]
  - DIARRHOEA [None]
  - GASTRIC ULCER [None]
  - NAUSEA [None]
  - VOMITING [None]
  - WEIGHT DECREASED [None]
